FAERS Safety Report 9353263 (Version 1)
Quarter: 2013Q2

REPORT INFORMATION
  Report Type: Spontaneous
  Country: US (occurrence: US)
  Receive Date: 20130618
  Receipt Date: 20130618
  Transmission Date: 20140414
  Serious: No
  Sender: FDA-Public Use
  Company Number: US-PFIZER INC-2013179766

PATIENT
  Age: 64 Year
  Sex: Female
  Weight: 88 kg

DRUGS (11)
  1. XELJANZ [Suspect]
     Indication: RHEUMATOID ARTHRITIS
     Dosage: 5 MG, 2X/DAY
     Route: 048
     Dates: start: 20130409
  2. LIPITOR [Concomitant]
     Dosage: 10 MG, UNK
  3. METFORMIN [Concomitant]
     Dosage: 500 MG, UNK
  4. LISINOPRIL [Concomitant]
     Dosage: 2.5 MG, UNK
  5. CITALOPRAM [Concomitant]
     Dosage: 10 MG, UNK
  6. SIMVASTATIN [Concomitant]
     Dosage: 5 MG, UNK
  7. LEVOTHYROXINE [Concomitant]
     Dosage: 25 UG, UNK
  8. METOPROLOL [Concomitant]
     Dosage: 25 MG, UNK
  9. NEXIUM [Concomitant]
     Dosage: 20 MG, UNK
  10. VITAMIN B12 [Concomitant]
     Dosage: 50 UG, UNK
  11. ASPIRIN ADLT [Concomitant]
     Dosage: 81 MG, UNK

REACTIONS (1)
  - Sinusitis [Unknown]
